FAERS Safety Report 10229056 (Version 2)
Quarter: 2014Q3

REPORT INFORMATION
  Report Type: Spontaneous
  Country: US (occurrence: US)
  Receive Date: 20140610
  Receipt Date: 20140814
  Transmission Date: 20150326
  Serious: No
  Sender: FDA-Public Use
  Company Number: US-009507513-1406USA001057

PATIENT
  Age: 56 Year
  Sex: Male

DRUGS (6)
  1. SOVALDI [Suspect]
     Active Substance: SOFOSBUVIR
  2. PEGINTRON [Suspect]
     Active Substance: PEGINTERFERON ALFA-2B
     Indication: CHRONIC HEPATITIS C
     Dosage: 120 MICROGRAM, QW
     Route: 058
     Dates: start: 20140530, end: 20140621
  3. MACROBID [Concomitant]
     Active Substance: NITROFURANTOIN\NITROFURANTOIN MONOHYDRATE
  4. COUMADIN [Concomitant]
     Active Substance: WARFARIN SODIUM
  5. RIBASPHERE [Suspect]
     Active Substance: RIBAVIRIN
     Dosage: UNK
  6. DITROPAN [Concomitant]
     Active Substance: OXYBUTYNIN CHLORIDE

REACTIONS (9)
  - Chest discomfort [Unknown]
  - Fatigue [Unknown]
  - Protein total increased [Unknown]
  - International normalised ratio increased [Unknown]
  - Rash [Unknown]
  - Blood albumin decreased [Unknown]
  - Myalgia [Unknown]
  - Prothrombin time prolonged [Unknown]
  - Influenza like illness [Unknown]

NARRATIVE: CASE EVENT DATE: 2014
